FAERS Safety Report 6346619-2 (Version None)
Quarter: 2009Q3

REPORT INFORMATION
  Report Type: 
  Country: None (occurrence: None)
  Receive Date: 20090827
  Receipt Date: 20090820
  Transmission Date: 20100115
  Serious: Yes (Hospitalization)
  Sender: FDA-Public Use
  Company Number: CHNY2009DE03277

PATIENT
  Sex: Male

DRUGS (3)
  1. NICOTINE [Suspect]
     Indication: CHRONIC OBSTRUCTIVE PULMONARY DISEASE
     Dosage: 21 MG, QD, TRANSDERMAL
     Route: 062
  2. LITHIUM CARBONATE [Concomitant]
  3. OXYGEN (OXYGEN) [Concomitant]

REACTIONS (5)
  - OVERDOSE [None]
  - RESTLESSNESS [None]
  - TOBACCO POISONING [None]
  - TREATMENT NONCOMPLIANCE [None]
  - TREMOR [None]
